FAERS Safety Report 21154910 (Version 1)
Quarter: 2022Q3

REPORT INFORMATION
  Report Type: Spontaneous
  Country: US (occurrence: None)
  Receive Date: 20220730
  Receipt Date: 20220730
  Transmission Date: 20221027
  Serious: Yes (unspecified)
  Sender: FDA-Public Use
  Company Number: None

PATIENT
  Age: 49 Year
  Sex: Male

DRUGS (1)
  1. MOLNUPIRAVIR [Suspect]
     Active Substance: MOLNUPIRAVIR
     Indication: COVID-19
     Dosage: FREQUENCY : TWICE A DAY?
     Route: 048
     Dates: start: 20220725, end: 20220729

REACTIONS (5)
  - Malaise [None]
  - Hyperhidrosis [None]
  - Tongue discolouration [None]
  - Stomatitis [None]
  - Tongue dry [None]

NARRATIVE: CASE EVENT DATE: 20220729
